FAERS Safety Report 5218261-8 (Version None)
Quarter: 2007Q1

REPORT INFORMATION
  Report Type: 
  Country: None (occurrence: None)
  Receive Date: 20061130
  Receipt Date: 20060807
  Transmission Date: 20070707
  Serious: Yes (Hospitalization, Other)
  Sender: FDA-Public Use
  Company Number: US200603000960

PATIENT
  Age: 31 Year
  Sex: Male
  Weight: 90.7 kg

DRUGS (6)
  1. ZYPREXA [Suspect]
     Indication: SCHIZOPHRENIA
     Dosage: 10 MG
     Dates: start: 19990601, end: 20000101
  2. HALDOL SOLUTAB [Concomitant]
  3. TRILAFON [Concomitant]
  4. NAVANE [Concomitant]
  5. DOXEPIN HCL [Concomitant]
  6. ZOLOFT [Concomitant]

REACTIONS (4)
  - DIABETES MELLITUS NON-INSULIN-DEPENDENT [None]
  - DIABETIC COMA [None]
  - PANCREATITIS [None]
  - WEIGHT INCREASED [None]
